FAERS Safety Report 12557697 (Version 3)
Quarter: 2016Q4

REPORT INFORMATION
  Report Type: Spontaneous
  Country: US (occurrence: US)
  Receive Date: 20160714
  Receipt Date: 20161027
  Transmission Date: 20170207
  Serious: Yes (Hospitalization, Other)
  Sender: FDA-Public Use
  Company Number: US-ALEXION-A201605113

PATIENT
  Sex: Male

DRUGS (1)
  1. SOLIRIS [Suspect]
     Active Substance: ECULIZUMAB
     Indication: HAEMOLYTIC URAEMIC SYNDROME
     Dosage: UNK
     Route: 042

REACTIONS (6)
  - Mixed connective tissue disease [Recovering/Resolving]
  - Eating disorder [Unknown]
  - Scleroderma [Unknown]
  - Systemic lupus erythematosus [Recovering/Resolving]
  - Weight decreased [Unknown]
  - Fatigue [Unknown]
